FAERS Safety Report 12972972 (Version 2)
Quarter: 2017Q3

REPORT INFORMATION
  Report Type: Spontaneous
  Country: US (occurrence: US)
  Receive Date: 20161124
  Receipt Date: 20170807
  Transmission Date: 20171127
  Serious: No
  Sender: FDA-Public Use
  Company Number: US-PFIZER INC-2016539131

PATIENT
  Age: 79 Year
  Sex: Female

DRUGS (3)
  1. IBRANCE [Suspect]
     Active Substance: PALBOCICLIB
     Dosage: 125 MG, UNK
     Dates: start: 20161107
  2. IBRANCE [Suspect]
     Active Substance: PALBOCICLIB
     Dosage: 100 MG, UNK
     Dates: start: 201611
  3. IBRANCE [Suspect]
     Active Substance: PALBOCICLIB
     Dosage: 75 MG, UNK
     Dates: start: 201611

REACTIONS (7)
  - Night sweats [Unknown]
  - Onychophagia [Unknown]
  - Condition aggravated [Unknown]
  - Back pain [Unknown]
  - Diarrhoea [Unknown]
  - Cough [Unknown]
  - Anxiety [Unknown]

NARRATIVE: CASE EVENT DATE: 201611
